FAERS Safety Report 15121866 (Version 1)
Quarter: 2018Q3

REPORT INFORMATION
  Report Type: Spontaneous
  Country: FR (occurrence: FR)
  Receive Date: 20180709
  Receipt Date: 20180709
  Transmission Date: 20181010
  Serious: Yes (Hospitalization)
  Sender: FDA-Public Use
  Company Number: FR-TOLMAR, INC.-2018FR007001

PATIENT

DRUGS (3)
  1. BICALUTAMIDE. [Concomitant]
     Active Substance: BICALUTAMIDE
  2. ZOPICLONE [Concomitant]
     Active Substance: ZOPICLONE
  3. ELIGARD [Suspect]
     Active Substance: LEUPROLIDE ACETATE
     Indication: PROSTATE CANCER
     Dosage: 1 DF, MONTHLY
     Route: 058
     Dates: start: 20180427, end: 20180427

REACTIONS (6)
  - Delirium [Recovered/Resolved]
  - Logorrhoea [Recovered/Resolved]
  - Blood alkaline phosphatase increased [Not Recovered/Not Resolved]
  - Insomnia [Recovered/Resolved]
  - Anaemia [Not Recovered/Not Resolved]
  - Affective disorder [Recovered/Resolved]

NARRATIVE: CASE EVENT DATE: 201805
